FAERS Safety Report 22775560 (Version 2)
Quarter: 2025Q3

REPORT INFORMATION
  Report Type: Spontaneous
  Country: US (occurrence: US)
  Receive Date: 20230802
  Receipt Date: 20250828
  Transmission Date: 20251020
  Serious: Yes (Hospitalization, Other)
  Sender: QILU ANTIBIOTICS PHARMACEUTICAL
  Company Number: US-QILU PHARMACEUTICAL CO.LTD.-QLU-000076-2023

PATIENT
  Age: 15 Year

DRUGS (1)
  1. CEFTRIAXONE [Suspect]
     Active Substance: CEFTRIAXONE
     Indication: Postoperative abscess
     Route: 051

REACTIONS (6)
  - Gallbladder fibrosis [Recovered/Resolved]
  - Inflammation [Recovered/Resolved]
  - Excessive granulation tissue [Recovered/Resolved]
  - Haemorrhage [Recovered/Resolved]
  - Cholelithiasis [Recovered/Resolved]
  - Off label use [Recovered/Resolved]
